FAERS Safety Report 10469620 (Version 1)
Quarter: 2014Q3

REPORT INFORMATION
  Report Type: Spontaneous
  Country: US (occurrence: None)
  Receive Date: 20140919
  Receipt Date: 20140919
  Transmission Date: 20150326
  Serious: Yes (Disabling, Other)
  Sender: FDA-Public Use
  Company Number: 1204-197

PATIENT
  Age: 90 Year
  Sex: Female

DRUGS (2)
  1. EYLEA [Suspect]
     Active Substance: AFLIBERCEPT
     Indication: MACULAR DEGENERATION
     Dates: start: 20111221, end: 20111221
  2. TRIAMTERENE AND HYDROCHLOROTHIAZIDE (HYDROCHLOROTHIAZIDE, TRIAMTERENE) [Concomitant]

REACTIONS (3)
  - Visual acuity reduced [None]
  - Endophthalmitis [None]
  - Vitrectomy [None]

NARRATIVE: CASE EVENT DATE: 201112
